FAERS Safety Report 5807329-0 (Version None)
Quarter: 2008Q3

REPORT INFORMATION
  Report Type: 
  Country: None (occurrence: None)
  Receive Date: 20080711
  Receipt Date: 20080702
  Transmission Date: 20090109
  Serious: Yes (Death, Other)
  Sender: FDA-Public Use
  Company Number: BE-ELI_LILLY_AND_COMPANY-BE200806001638

PATIENT
  Sex: Male
  Weight: 93 kg

DRUGS (7)
  1. CIALIS [Suspect]
     Indication: ERECTILE DYSFUNCTION
     Dosage: 1 D/F, WEEKLY (1/W)
     Route: 048
  2. XYZAL [Concomitant]
     Dosage: UNK, DAILY (1/D)
  3. SERETIDE [Concomitant]
     Dosage: UNK, 2/D
  4. COMBIVENT [Concomitant]
     Dosage: UNK, AS NEEDED
     Dates: start: 19980101
  5. COVERSYL [Concomitant]
     Dosage: UNK, DAILY (1/D)
     Dates: start: 20010101
  6. ASAFLOW [Concomitant]
     Dosage: 160 MG, DAILY (1/D)
     Dates: start: 20010101
  7. ZOCOR [Concomitant]
     Dosage: 20 MG, DAILY (1/D)
     Dates: start: 20010101

REACTIONS (5)
  - CARDIAC FIBRILLATION [None]
  - DYSPNOEA [None]
  - FALL [None]
  - PALLOR [None]
  - SUDDEN CARDIAC DEATH [None]
